FAERS Safety Report 10159551 (Version 2)
Quarter: 2014Q2

REPORT INFORMATION
  Report Type: Spontaneous
  Country: US (occurrence: US)
  Receive Date: 20140508
  Receipt Date: 20140508
  Transmission Date: 20141212
  Serious: Yes (Death, Hospitalization)
  Sender: FDA-Public Use
  Company Number: US-NOVOPROD-406357

PATIENT
  Sex: Male

DRUGS (2)
  1. PRANDIN [Suspect]
     Indication: BLOOD GLUCOSE INCREASED
     Route: 048
  2. CELEBREX [Suspect]
     Indication: NON-HODGKIN^S LYMPHOMA
     Route: 048

REACTIONS (3)
  - Death [Fatal]
  - Adverse event [Unknown]
  - Blood glucose decreased [Unknown]
